FAERS Safety Report 17747615 (Version 2)
Quarter: 2021Q2

REPORT INFORMATION
  Report Type: Spontaneous
  Country: US (occurrence: US)
  Receive Date: 20200505
  Receipt Date: 20210505
  Transmission Date: 20210716
  Serious: No
  Sender: FDA-Public Use
  Company Number: US-ROCHE-2529151

PATIENT
  Sex: Female
  Weight: 59.5 kg

DRUGS (2)
  1. ESBRIET [Suspect]
     Active Substance: PIRFENIDONE
     Indication: IDIOPATHIC PULMONARY FIBROSIS
     Route: 048
     Dates: start: 20191206, end: 20191210
  2. ESBRIET [Suspect]
     Active Substance: PIRFENIDONE
     Route: 046
     Dates: end: 20191012

REACTIONS (1)
  - Muscle spasms [Unknown]
